FAERS Safety Report 25979891 (Version 1)
Quarter: 2025Q4

REPORT INFORMATION
  Report Type: Spontaneous
  Country: US (occurrence: US)
  Receive Date: 20251030
  Receipt Date: 20251030
  Transmission Date: 20260117
  Serious: No
  Sender: PFIZER
  Company Number: US-PFIZER INC-202500209691

PATIENT
  Age: 12 Year
  Sex: Female

DRUGS (1)
  1. GENOTROPIN [Suspect]
     Active Substance: SOMATROPIN
     Indication: Short stature
     Dosage: 12 MG
     Dates: start: 202312, end: 20251009

REACTIONS (4)
  - Rash [Unknown]
  - Urticaria [Unknown]
  - Swelling face [Unknown]
  - Throat irritation [Unknown]

NARRATIVE: CASE EVENT DATE: 20251003
